FAERS Safety Report 8460660-5 (Version None)
Quarter: 2012Q2

REPORT INFORMATION
  Report Type: 
  Country: None (occurrence: None)
  Receive Date: 20120622
  Receipt Date: 20120614
  Transmission Date: 20120825
  Serious: Yes (Death, Hospitalization)
  Sender: FDA-Public Use
  Company Number: GB-ROCHE-747729

PATIENT
  Sex: Male
  Weight: 67 kg

DRUGS (3)
  1. METHOTREXATE [Concomitant]
  2. PREDNISOLONE [Concomitant]
  3. MABTHERA [Suspect]
     Indication: RHEUMATOID ARTHRITIS
     Dosage: 01 NOV 2011, LAST RITUXIMAB INFUSION
     Route: 065

REACTIONS (5)
  - PNEUMONIA [None]
  - CHRONIC OBSTRUCTIVE PULMONARY DISEASE [None]
  - PULMONARY EMBOLISM [None]
  - RESPIRATORY FAILURE [None]
  - LOWER RESPIRATORY TRACT INFECTION [None]
